FAERS Safety Report 12908225 (Version 2)
Quarter: 2017Q3

REPORT INFORMATION
  Report Type: Spontaneous
  Country: CH (occurrence: AU)
  Receive Date: 20161103
  Receipt Date: 20170927
  Transmission Date: 20171127
  Serious: Yes (Other)
  Sender: FDA-Public Use
  Company Number: CH-LPDUSPRD-20160967

PATIENT
  Age: 52 Year
  Sex: Female

DRUGS (1)
  1. FERINJECT [Suspect]
     Active Substance: FERRIC CARBOXYMALTOSE
     Dosage: 2  VIALS IN 30 MINUTES
     Route: 040
     Dates: start: 20150810, end: 20150810

REACTIONS (9)
  - Headache [Unknown]
  - Flushing [Unknown]
  - Skin discolouration [Unknown]
  - Tachycardia [Unknown]
  - Diarrhoea [Unknown]
  - Hyperventilation [Unknown]
  - Anaphylactoid reaction [Unknown]
  - Arthralgia [Unknown]
  - Pruritus [Unknown]

NARRATIVE: CASE EVENT DATE: 201508
